FAERS Safety Report 18507101 (Version 1)
Quarter: 2020Q4

REPORT INFORMATION
  Report Type: Spontaneous
  Country: US (occurrence: US)
  Receive Date: 20201116
  Receipt Date: 20201116
  Transmission Date: 20210114
  Serious: Yes (Other)
  Sender: FDA-Public Use
  Company Number: US-MYLANLABS-2020M1094450

PATIENT
  Age: 22 Year
  Sex: Female
  Weight: 73 kg

DRUGS (10)
  1. DIPHENHYDRAMINE. [Suspect]
     Active Substance: DIPHENHYDRAMINE
     Indication: PREMEDICATION
     Dosage: 50 MILLIGRAM
     Route: 042
  2. MORPHINE [Suspect]
     Active Substance: MORPHINE
     Indication: SPINAL ANAESTHESIA
     Dosage: 200 MICROGRAM
     Route: 037
  3. FUROSEMIDE. [Suspect]
     Active Substance: FUROSEMIDE
     Indication: PREMEDICATION
     Dosage: 10 MILLIGRAM
     Route: 042
  4. FENTANYL. [Suspect]
     Active Substance: FENTANYL
     Indication: SPINAL ANAESTHESIA
     Dosage: 15 MICROGRAM
     Route: 037
  5. NOREPINEPHRINE. [Suspect]
     Active Substance: NOREPINEPHRINE
     Indication: VASCULAR RESISTANCE SYSTEMIC DECREASED
     Dosage: 2 MICROGRAM, QMINUTE
     Route: 065
  6. NITRIC OXIDE. [Suspect]
     Active Substance: NITRIC OXIDE
     Indication: PREMEDICATION
     Dosage: RESPIRATORY (INHALATION)
     Route: 055
  7. EPHEDRINE. [Suspect]
     Active Substance: EPHEDRINE
     Indication: DRUG THERAPY
     Dosage: 10 MILLIGRAM
     Route: 042
  8. BUPIVACAINE. [Suspect]
     Active Substance: BUPIVACAINE
     Indication: SPINAL ANAESTHESIA
     Dosage: HYPERBARIC
     Route: 037
  9. PHENYLEPHRINE [Suspect]
     Active Substance: PHENYLEPHRINE HYDROCHLORIDE
     Indication: DRUG THERAPY
     Dosage: 160 MICROGRAM
     Route: 065
  10. LIDOCAINE. [Suspect]
     Active Substance: LIDOCAINE
     Indication: SPINAL ANAESTHESIA
     Dosage: 15 ML OVER 23 MINUTES
     Route: 008

REACTIONS (2)
  - Vascular resistance systemic decreased [Recovering/Resolving]
  - Maternal exposure during delivery [Unknown]
